FAERS Safety Report 10017251 (Version 2)
Quarter: 2014Q2

REPORT INFORMATION
  Report Type: Spontaneous
  Country: JP (occurrence: JP)
  Receive Date: 20140318
  Receipt Date: 20140404
  Transmission Date: 20141212
  Serious: Yes (Hospitalization)
  Sender: FDA-Public Use
  Company Number: JP-UCBSA-114651

PATIENT
  Age: 83 Year
  Sex: Female

DRUGS (3)
  1. XYZAL [Suspect]
     Indication: PEMPHIGOID
     Route: 048
  2. MINOMYCIN [Concomitant]
     Indication: PEMPHIGOID
     Route: 048
  3. POLARAMINE [Concomitant]
     Indication: PEMPHIGOID
     Route: 048

REACTIONS (1)
  - Erythema multiforme [Recovered/Resolved]
